FAERS Safety Report 5222398-7 (Version None)
Quarter: 2007Q1

REPORT INFORMATION
  Report Type: 
  Country: None (occurrence: None)
  Receive Date: 20070129
  Receipt Date: 20060215
  Transmission Date: 20070707
  Serious: No
  Sender: FDA-Public Use
  Company Number: US-BRISTOL-MYERS SQUIBB COMPANY-13284575

PATIENT
  Age: 5 Decade
  Sex: Male

DRUGS (2)
  1. TRAZODONE HCL [Suspect]
  2. LORAZEPAM [Concomitant]

REACTIONS (5)
  - ASTHENIA [None]
  - DEPRESSION [None]
  - FEELING COLD [None]
  - PHARYNGOLARYNGEAL PAIN [None]
  - THYROID DISORDER [None]
